FAERS Safety Report 13815266 (Version 1)
Quarter: 2017Q3

REPORT INFORMATION
  Report Type: Spontaneous
  Country: US (occurrence: US)
  Receive Date: 20170729
  Receipt Date: 20170729
  Transmission Date: 20171127
  Serious: No
  Sender: FDA-Public Use
  Company Number: None

PATIENT
  Age: 29 Year
  Sex: Female
  Weight: 59 kg

DRUGS (1)
  1. DILTIAZEM. [Suspect]
     Active Substance: DILTIAZEM
     Indication: ANAL FISSURE
     Route: 061
     Dates: start: 20100601, end: 20100607

REACTIONS (1)
  - Anal pruritus [None]

NARRATIVE: CASE EVENT DATE: 20100601
